FAERS Safety Report 7208331-7 (Version None)
Quarter: 2010Q4

REPORT INFORMATION
  Report Type: 
  Country: None (occurrence: None)
  Receive Date: 20101230
  Receipt Date: 20101230
  Transmission Date: 20110411
  Serious: No
  Sender: FDA-Public Use
  Company Number: None

PATIENT
  Sex: Female
  Weight: 50.8029 kg

DRUGS (1)
  1. CVS COLD REMEDY FAST MELTING TABLETS [Suspect]
     Indication: NASOPHARYNGITIS
     Dosage: 2 TABLETS DAILY
     Dates: start: 20101201, end: 20101204

REACTIONS (2)
  - TABLET ISSUE [None]
  - TONGUE ULCERATION [None]
